FAERS Safety Report 21127938 (Version 1)
Quarter: 2022Q3

REPORT INFORMATION
  Report Type: Spontaneous
  Country: US (occurrence: US)
  Receive Date: 20220725
  Receipt Date: 20220725
  Transmission Date: 20221027
  Serious: No
  Sender: FDA-Public Use
  Company Number: US-ABBVIE-22K-163-4290830-00

PATIENT
  Sex: Female

DRUGS (2)
  1. SYNTHROID [Suspect]
     Active Substance: LEVOTHYROXINE SODIUM
     Indication: Product used for unknown indication
     Route: 048
  2. SYNTHROID [Suspect]
     Active Substance: LEVOTHYROXINE SODIUM
     Dosage: DOSAGE DECREASED
     Route: 048

REACTIONS (3)
  - Malaise [Unknown]
  - Dizziness [Recovered/Resolved]
  - Suspected product quality issue [Unknown]

NARRATIVE: CASE EVENT DATE: 20220101
